FAERS Safety Report 15862818 (Version 1)
Quarter: 2018Q4

REPORT INFORMATION
  Report Type: Spontaneous
  Country: US (occurrence: US)
  Receive Date: 20181231
  Receipt Date: 20181231
  Transmission Date: 20190205
  Serious: Yes (Hospitalization)
  Sender: FDA-Public Use
  Company Number: None

PATIENT
  Age: 70 Year
  Sex: Male

DRUGS (1)
  1. CLONIDINE. [Suspect]
     Active Substance: CLONIDINE
     Indication: HYPERTENSION
     Route: 061
     Dates: start: 20080926, end: 20181226

REACTIONS (7)
  - Urticaria [None]
  - Pruritus [None]
  - Transient ischaemic attack [None]
  - Hypotension [None]
  - Application site rash [None]
  - Application site burn [None]
  - Monoparesis [None]

NARRATIVE: CASE EVENT DATE: 20181222
